FAERS Safety Report 18553566 (Version 3)
Quarter: 2021Q1

REPORT INFORMATION
  Report Type: Other
  Country: US (occurrence: US)
  Receive Date: 20201127
  Receipt Date: 20210301
  Transmission Date: 20210419
  Serious: Yes (Other)
  Sender: FDA-Public Use
  Company Number: US-ROCHE-2722628

PATIENT
  Age: 67 Year
  Sex: Male
  Weight: 102.15 kg

DRUGS (3)
  1. OCREVUS [Suspect]
     Active Substance: OCRELIZUMAB
     Indication: RELAPSING MULTIPLE SCLEROSIS
     Route: 042
     Dates: start: 2018
  2. MORPHINE [Concomitant]
     Active Substance: MORPHINE
     Indication: ARTHRITIS
     Route: 048
     Dates: start: 2009
  3. OCREVUS [Suspect]
     Active Substance: OCRELIZUMAB
     Indication: RELAPSING-REMITTING MULTIPLE SCLEROSIS
     Dosage: ONGOING: YES?PRESCRIBED: INITIAL 300 MG IV DAYS 1 AND 15; SUBSEQUENT: 600 MG EVERY 6 MONTHS
     Route: 042
     Dates: start: 20191029

REACTIONS (3)
  - Rheumatoid arthritis [Not Recovered/Not Resolved]
  - Multiple sclerosis relapse [Not Recovered/Not Resolved]
  - COVID-19 [Recovered/Resolved]

NARRATIVE: CASE EVENT DATE: 202006
